FAERS Safety Report 19939688 (Version 1)
Quarter: 2021Q4

REPORT INFORMATION
  Report Type: Spontaneous
  Country: US (occurrence: US)
  Receive Date: 20211012
  Receipt Date: 20211012
  Transmission Date: 20220303
  Serious: No
  Sender: FDA-Public Use
  Company Number: US-SA-SAC20211007001123

PATIENT
  Sex: Female

DRUGS (1)
  1. LEMTRADA [Suspect]
     Active Substance: ALEMTUZUMAB
     Route: 042

REACTIONS (5)
  - Influenza [Unknown]
  - Nasopharyngitis [Unknown]
  - Malaise [Unknown]
  - Nausea [Unknown]
  - Hypersomnia [Unknown]
